FAERS Safety Report 20259310 (Version 3)
Quarter: 2022Q1

REPORT INFORMATION
  Report Type: Report from Study
  Country: CO (occurrence: CO)
  Receive Date: 20211230
  Receipt Date: 20220323
  Transmission Date: 20220423
  Serious: Yes (Other)
  Sender: FDA-Public Use
  Company Number: CO-NOVARTISPH-NVSC2021CO296960

PATIENT
  Sex: Male
  Weight: 70 kg

DRUGS (4)
  1. COSENTYX [Suspect]
     Active Substance: SECUKINUMAB
     Indication: Ankylosing spondylitis
     Dosage: 150 MG, QMO
     Route: 058
  2. COSENTYX [Suspect]
     Active Substance: SECUKINUMAB
     Dosage: UNK
     Route: 065
     Dates: start: 20220202
  3. COSENTYX [Suspect]
     Active Substance: SECUKINUMAB
     Dosage: 150 MG, QMO
     Route: 058
     Dates: start: 20220228
  4. LEVOTHYROXINE [Concomitant]
     Active Substance: LEVOTHYROXINE
     Indication: Thyroid disorder
     Dosage: 100 MG. QD (DAILY, STARTED 4 YEARS AGO)
     Route: 048

REACTIONS (8)
  - Hand fracture [Unknown]
  - Wound [Recovered/Resolved]
  - Accident [Unknown]
  - Skin laceration [Unknown]
  - Back pain [Unknown]
  - Pain [Unknown]
  - Mental disorder [Unknown]
  - Musculoskeletal pain [Unknown]
